FAERS Safety Report 7598061-4 (Version None)
Quarter: 2011Q3

REPORT INFORMATION
  Report Type: 
  Country: None (occurrence: None)
  Receive Date: 20110708
  Receipt Date: 20110628
  Transmission Date: 20111222
  Serious: Yes (Other)
  Sender: FDA-Public Use
  Company Number: US-UCBSA-026813

PATIENT
  Sex: Female
  Weight: 70 kg

DRUGS (5)
  1. METHOTREXATE [Concomitant]
  2. PREDNISONE [Concomitant]
  3. RELAFEN [Concomitant]
     Indication: RHEUMATOID ARTHRITIS
     Dosage: 500
     Route: 048
     Dates: start: 20100310
  4. CERTOLIZUMAB PEGOL [Suspect]
     Indication: RHEUMATOID ARTHRITIS
     Route: 058
     Dates: start: 20100610, end: 20110124
  5. LORTAB [Concomitant]
     Indication: RHEUMATOID ARTHRITIS
     Dosage: 7.5/500 MG (1) BID
     Route: 048
     Dates: start: 20101201

REACTIONS (1)
  - ABSCESS [None]
